FAERS Safety Report 7457766-6 (Version None)
Quarter: 2011Q2

REPORT INFORMATION
  Report Type: 
  Country: None (occurrence: None)
  Receive Date: 20110426
  Receipt Date: 20110411
  Transmission Date: 20111010
  Serious: Yes (Other)
  Sender: FDA-Public Use
  Company Number: IDA-00533

PATIENT
  Age: 66 Year
  Sex: Female

DRUGS (5)
  1. LIDOCAINE HYDROCHLORIDE/EPRINEPHRINE (EPINEPHRINE, LIDOCAINE) STRENGTH [Suspect]
     Dosage: DAILY DOSE: 40 ML WITH 1:200,000; INJECTION
     Route: 030
  2. DYAZIDE [Suspect]
     Indication: HYPERTENSION
  3. DIAZEPAM [Concomitant]
  4. PROPRANOLOL ADDITIVE: EPINEPHRINE [Suspect]
     Indication: HYPERTENSION
     Dosage: DAILY DOSE: 10 MG BID, ORAL
     Route: 048
  5. ATROPINE [Suspect]

REACTIONS (3)
  - DRUG INTERACTION [None]
  - TACHYCARDIA [None]
  - HYPERTENSION [None]
